FAERS Safety Report 13389880 (Version 1)
Quarter: 2017Q1

REPORT INFORMATION
  Report Type: Spontaneous
  Country: US (occurrence: US)
  Receive Date: 20170331
  Receipt Date: 20170331
  Transmission Date: 20170429
  Serious: Yes (Other)
  Sender: FDA-Public Use
  Company Number: US-TEVA-754066ACC

PATIENT
  Age: 27 Year
  Sex: Female
  Weight: 74.46 kg

DRUGS (1)
  1. PARAGARD T 380A [Suspect]
     Active Substance: COPPER
     Indication: CONTRACEPTION
     Dates: start: 20151130

REACTIONS (6)
  - Device dislocation [Not Recovered/Not Resolved]
  - Orgasm abnormal [Unknown]
  - Abdominal pain lower [Unknown]
  - Bladder disorder [Unknown]
  - Abdominal distension [Unknown]
  - Pollakiuria [Unknown]

NARRATIVE: CASE EVENT DATE: 20170301
